FAERS Safety Report 18097338 (Version 4)
Quarter: 2020Q4

REPORT INFORMATION
  Report Type: Spontaneous
  Country: DE (occurrence: DE)
  Receive Date: 20200731
  Receipt Date: 20201009
  Transmission Date: 20210113
  Serious: Yes (Hospitalization, Other)
  Sender: FDA-Public Use
  Company Number: NVSC2020DE211339

PATIENT
  Age: 75 Year
  Sex: Female
  Weight: 88 kg

DRUGS (21)
  1. FOLSAN [Suspect]
     Active Substance: FOLIC ACID
     Dosage: 5 MG
     Route: 048
  2. TOLPERISONE [Suspect]
     Active Substance: TOLPERISONE
     Dosage: 50 MG
     Route: 048
  3. CLADRIBINE. [Suspect]
     Active Substance: CLADRIBINE
     Indication: RELAPSING-REMITTING MULTIPLE SCLEROSIS
     Dosage: 10 MG, UNKNOWN (FIRST WEEK THERAPY, TOOK 10 MG ON 13 MAY 2019)
     Route: 048
     Dates: start: 20190513, end: 20190517
  4. CLADRIBINE. [Suspect]
     Active Substance: CLADRIBINE
     Dosage: FIRST WEEK THERAPY (TOOK 10 MG ON 13 MAY 2019).
     Route: 048
     Dates: start: 20190513, end: 20190517
  5. METFORMIN [Suspect]
     Active Substance: METFORMIN HYDROCHLORIDE
     Indication: DIABETES MELLITUS
     Dosage: 500 MG, BID
     Route: 048
  6. CLADRIBINE. [Suspect]
     Active Substance: CLADRIBINE
     Dosage: UNK (SECOND WEEK THERAPY)
     Route: 048
     Dates: start: 20190604, end: 20190611
  7. CLADRIBINE. [Suspect]
     Active Substance: CLADRIBINE
     Dosage: SECOND WEEK THERAPY (TOOK 10 MG ON 15 JUN 2019): MOST RECENT DOSE PRIOR TO AE GIVEN ON 19 JUN 2019
     Route: 048
     Dates: start: 20190615
  8. MOVICOL [Suspect]
     Active Substance: POLYETHYLENE GLYCOL 3350\POTASSIUM CHLORIDE\SODIUM BICARBONATE\SODIUM CHLORIDE
     Indication: NEUROGENIC BOWEL
     Dosage: UNK
     Route: 048
  9. BISOPROLOL [Suspect]
     Active Substance: BISOPROLOL
     Route: 048
  10. BISOPROLOL [Suspect]
     Active Substance: BISOPROLOL
     Indication: HYPERTENSION
     Dosage: 2.5 MG, QD
     Route: 048
  11. FLECAINIDE [Suspect]
     Active Substance: FLECAINIDE
     Indication: ATRIAL FIBRILLATION
     Dosage: 0.5 DF, QD
     Route: 048
  12. TOLPERISONE [Suspect]
     Active Substance: TOLPERISONE
     Indication: CEREBROVASCULAR ACCIDENT
     Dosage: 50 MG, QD
     Route: 048
  13. METFORMIN [Suspect]
     Active Substance: METFORMIN HYDROCHLORIDE
     Dosage: 500 MG
     Route: 048
  14. CLADRIBINE. [Suspect]
     Active Substance: CLADRIBINE
     Dosage: 10 MG, UNKNOWN (SECOND WEEK THERAPY, TOOK 10 MG ON 15 JUN 2019, MOST RECENT DOSE PRIOR TO AE GIVEN O
     Route: 048
     Dates: start: 20190615, end: 20190619
  15. NOVALGIN [Concomitant]
     Indication: PRODUCT USED FOR UNKNOWN INDICATION
     Dosage: UNK
     Route: 065
  16. FOLSAN [Suspect]
     Active Substance: FOLIC ACID
     Indication: FOLATE DEFICIENCY
     Dosage: 5 MG, QD
     Route: 048
  17. GLIBENCLAMID [Suspect]
     Active Substance: GLYBURIDE
     Indication: DIABETES MELLITUS
     Dosage: 3.5 MG, QD
     Route: 048
  18. XARELTO [Suspect]
     Active Substance: RIVAROXABAN
     Indication: VENOUS THROMBOSIS
     Dosage: 20 MG, QD (THERAPY PAUSED)
     Route: 048
  19. FLECAINIDE [Suspect]
     Active Substance: FLECAINIDE
     Dosage: .5 DF
     Route: 048
  20. GLIBENCLAMID [Suspect]
     Active Substance: GLYBURIDE
     Dosage: 3.5 MG
     Route: 048
  21. XARELTO [Suspect]
     Active Substance: RIVAROXABAN
     Dosage: THERAPY PAUSED
     Route: 048

REACTIONS (1)
  - Uterine cancer [Recovered/Resolved]

NARRATIVE: CASE EVENT DATE: 20190717
